FAERS Safety Report 9153587 (Version 2)
Quarter: 2013Q1

REPORT INFORMATION
  Report Type: Spontaneous
  Country: FR (occurrence: FR)
  Receive Date: 20130311
  Receipt Date: 20130315
  Transmission Date: 20140127
  Serious: Yes (Disabling)
  Sender: FDA-Public Use
  Company Number: FR-MERCK-1303FRA000743

PATIENT
  Sex: Male

DRUGS (3)
  1. INTRONA [Suspect]
     Indication: PRODUCT USED FOR UNKNOWN INDICATION
     Dosage: UNK
     Dates: start: 20030101, end: 20081201
  2. BURINEX [Concomitant]
     Dosage: 1 MG, BID
  3. ALDACTONE TABLETS [Concomitant]
     Dosage: 75 MG, QD

REACTIONS (1)
  - Pulmonary arterial hypertension [Not Recovered/Not Resolved]
